FAERS Safety Report 10045646 (Version 1)
Quarter: 2014Q1

REPORT INFORMATION
  Report Type: Spontaneous
  Country: US (occurrence: None)
  Receive Date: 20140306
  Receipt Date: 20140306
  Transmission Date: 20141002
  Serious: Yes (Disabling)
  Sender: FDA-Public Use
  Company Number: 163-21880-13060323

PATIENT
  Age: 69 Year
  Sex: Female

DRUGS (8)
  1. REVLIMID (LENALIDOMIDE) (25 MILLIGRAM, CAPSULES) [Suspect]
     Indication: PLASMA CELL MYELOMA
     Dosage: 25 MG, 21 IN 21 D, PO
     Route: 048
     Dates: start: 200910
  2. LISINOPRIL/HCTZ (PRINZIDE) [Concomitant]
  3. METFORMIN (METFORMIN) [Concomitant]
  4. DEXAMETHASONE (DEXAMETHASONE) [Concomitant]
  5. GLIPIZIDE (GLIPIZIDE) [Concomitant]
  6. ACYCLOVIR (ACICLOVIR) [Concomitant]
  7. SIMVASTATIN (SIMVASTATIN) [Concomitant]
  8. ASA (ACETYLSALICYLIC ACID) [Concomitant]

REACTIONS (1)
  - Pulmonary embolism [None]
